FAERS Safety Report 24205788 (Version 1)
Quarter: 2024Q3

REPORT INFORMATION
  Report Type: Spontaneous
  Country: US (occurrence: US)
  Receive Date: 20240813
  Receipt Date: 20240813
  Transmission Date: 20241016
  Serious: Yes (Death, Hospitalization, Other)
  Sender: DR REDDYS
  Company Number: US-DRL-USA-LIT/USA/24/0011706

PATIENT
  Age: 53 Year
  Sex: Female

DRUGS (9)
  1. HEPARIN [Suspect]
     Active Substance: HEPARIN SODIUM
     Indication: Pulmonary embolism
     Route: 041
  2. VASOPRESSIN [Suspect]
     Active Substance: VASOPRESSIN
     Indication: Septic shock
  3. VASOPRESSIN [Suspect]
     Active Substance: VASOPRESSIN
     Indication: Respiratory failure
  4. DOBUTAMINE [Suspect]
     Active Substance: DOBUTAMINE HYDROCHLORIDE
     Indication: Septic shock
  5. DOBUTAMINE [Suspect]
     Active Substance: DOBUTAMINE HYDROCHLORIDE
     Indication: Respiratory failure
  6. LINEZOLID [Suspect]
     Active Substance: LINEZOLID
     Indication: Fournier^s gangrene
  7. NOREPINEPHRINE [Suspect]
     Active Substance: NOREPINEPHRINE\NOREPINEPHRINE BITARTRATE
     Indication: Septic shock
  8. NOREPINEPHRINE [Suspect]
     Active Substance: NOREPINEPHRINE\NOREPINEPHRINE BITARTRATE
     Indication: Respiratory failure
  9. RIVAROXABAN [Concomitant]
     Active Substance: RIVAROXABAN
     Indication: Hypercoagulation

REACTIONS (6)
  - Drug ineffective [Fatal]
  - Multiple organ dysfunction syndrome [Fatal]
  - Condition aggravated [Fatal]
  - Septic shock [Unknown]
  - Respiratory failure [Unknown]
  - Product used for unknown indication [Unknown]
